FAERS Safety Report 21316677 (Version 1)
Quarter: 2022Q3

REPORT INFORMATION
  Report Type: Spontaneous
  Country: US (occurrence: US)
  Receive Date: 20220911
  Receipt Date: 20220911
  Transmission Date: 20221027
  Serious: No
  Sender: FDA-Public Use
  Company Number: US-SA-SAC20220818000089

PATIENT
  Sex: Female

DRUGS (21)
  1. DUPIXENT [Suspect]
     Active Substance: DUPILUMAB
     Indication: Dermatitis
     Dosage: 300 MG, QOW
     Route: 058
  2. ALENDRONATE [Concomitant]
     Active Substance: ALENDRONATE SODIUM
  3. ALLOPURINOL [Concomitant]
     Active Substance: ALLOPURINOL
  4. AMLODIPINE BESYLATE [Concomitant]
     Active Substance: AMLODIPINE BESYLATE
  5. ASPIRIN [Concomitant]
     Active Substance: ASPIRIN
     Dosage: 500MG
  6. ATORVASTATIN [Concomitant]
     Active Substance: ATORVASTATIN
  7. CALCIUM [Concomitant]
     Active Substance: CALCIUM
  8. DOXEPIN HCL [Concomitant]
     Active Substance: DOXEPIN HYDROCHLORIDE
  9. DULOXETINE HYDROCHLORIDE [Concomitant]
     Active Substance: DULOXETINE HYDROCHLORIDE
  10. FOLIC ACID [Concomitant]
     Active Substance: FOLIC ACID
  11. GABAPENTIN [Concomitant]
     Active Substance: GABAPENTIN
  12. IRON [Concomitant]
     Active Substance: IRON
  13. JARDIANCE [Concomitant]
     Active Substance: EMPAGLIFLOZIN
  14. LANTUS [Concomitant]
     Active Substance: INSULIN GLARGINE
  15. MAGNESIUM [Concomitant]
     Active Substance: MAGNESIUM
  16. NOVOLOG [Concomitant]
     Active Substance: INSULIN ASPART
  17. ROPINIROLE HYDROCHLORIDE [Concomitant]
     Active Substance: ROPINIROLE HYDROCHLORIDE
  18. TRAMADOL HCL [Concomitant]
     Active Substance: TRAMADOL HYDROCHLORIDE
  19. WARFARIN SODIUM [Concomitant]
     Active Substance: WARFARIN SODIUM
  20. HYDROCHLOROTHIAZIDE [Concomitant]
     Active Substance: HYDROCHLOROTHIAZIDE
  21. LEVOTHYROXINE [Concomitant]
     Active Substance: LEVOTHYROXINE

REACTIONS (1)
  - Drug ineffective for unapproved indication [Unknown]
